FAERS Safety Report 5504381-7 (Version None)
Quarter: 2007Q4

REPORT INFORMATION
  Report Type: 
  Country: None (occurrence: None)
  Receive Date: 20071101
  Receipt Date: 20070914
  Transmission Date: 20080405
  Serious: Yes (Other)
  Sender: FDA-Public Use
  Company Number: US-PFIZER INC-2007077496

PATIENT
  Sex: Male
  Weight: 81.6 kg

DRUGS (1)
  1. LIPITOR [Suspect]
     Indication: BLOOD CHOLESTEROL
     Dates: start: 20070801, end: 20070821

REACTIONS (5)
  - HYPOAESTHESIA [None]
  - LIVER DISORDER [None]
  - PAIN [None]
  - PARAESTHESIA [None]
  - RENAL DISORDER [None]
